FAERS Safety Report 12544848 (Version 2)
Quarter: 2016Q3

REPORT INFORMATION
  Report Type: Spontaneous
  Country: US (occurrence: US)
  Receive Date: 20160711
  Receipt Date: 20160810
  Transmission Date: 20161109
  Serious: Yes (Death, Other)
  Sender: FDA-Public Use
  Company Number: US-BAYER-2016-130000

PATIENT
  Age: 80 Year
  Sex: Male
  Weight: 77.98 kg

DRUGS (1)
  1. ALEVE [Suspect]
     Active Substance: NAPROXEN SODIUM
     Indication: ANALGESIC THERAPY
     Dosage: 2 DF, QD
     Route: 048

REACTIONS (5)
  - Myocardial infarction [Fatal]
  - Cardiac arrest [Fatal]
  - Renal impairment [None]
  - Liver disorder [None]
  - Metabolic acidosis [Fatal]

NARRATIVE: CASE EVENT DATE: 20160322
